FAERS Safety Report 25460552 (Version 1)
Quarter: 2025Q2

REPORT INFORMATION
  Report Type: Spontaneous
  Country: LT (occurrence: LT)
  Receive Date: 20250620
  Receipt Date: 20250620
  Transmission Date: 20250717
  Serious: Yes (Life-Threatening, Hospitalization)
  Sender: MYLAN
  Company Number: LT-MYLANLABS-2025M1051677

PATIENT
  Age: 9 Year
  Sex: Male

DRUGS (4)
  1. FENTANYL [Suspect]
     Active Substance: FENTANYL
     Indication: Contusion
     Dosage: 100 MICROGRAM, QH
  2. FENTANYL [Suspect]
     Active Substance: FENTANYL
     Dosage: 100 MICROGRAM, QH
     Route: 062
  3. FENTANYL [Suspect]
     Active Substance: FENTANYL
     Dosage: 100 MICROGRAM, QH
     Route: 062
  4. FENTANYL [Suspect]
     Active Substance: FENTANYL
     Dosage: 100 MICROGRAM, QH

REACTIONS (10)
  - Prescription drug used without a prescription [Unknown]
  - Accidental overdose [Unknown]
  - Coma [Recovered/Resolved]
  - Respiratory depression [Recovered/Resolved]
  - Hypotension [Recovered/Resolved]
  - Toxic leukoencephalopathy [Not Recovered/Not Resolved]
  - Seizure [Recovered/Resolved]
  - Heart rate decreased [Recovered/Resolved]
  - Vomiting [Unknown]
  - Somnolence [Recovered/Resolved]
